FAERS Safety Report 15214567 (Version 1)
Quarter: 2018Q3

REPORT INFORMATION
  Report Type: Spontaneous
  Country: FR (occurrence: FR)
  Receive Date: 20180730
  Receipt Date: 20180730
  Transmission Date: 20181010
  Serious: Yes (Hospitalization, Other)
  Sender: FDA-Public Use
  Company Number: FR-VIIV HEALTHCARE LIMITED-B0347600A

PATIENT
  Age: 0 Year
  Sex: Male
  Weight: 3 kg

DRUGS (2)
  1. VIRACEPT [Suspect]
     Active Substance: NELFINAVIR MESYLATE
     Indication: HIV INFECTION
     Dosage: UNK UNK, U
     Route: 064
     Dates: start: 20040429
  2. COMBIVIR [Suspect]
     Active Substance: LAMIVUDINE\ZIDOVUDINE
     Indication: HIV INFECTION
     Dosage: UNK UNK, U
     Route: 064
     Dates: start: 20040429

REACTIONS (4)
  - Meconium peritonitis [Recovered/Resolved]
  - Foetal exposure during pregnancy [Unknown]
  - Ascites [Recovered/Resolved]
  - Ultrasound scan abnormal [Recovered/Resolved]

NARRATIVE: CASE EVENT DATE: 20040429
